FAERS Safety Report 17584567 (Version 1)
Quarter: 2020Q1

REPORT INFORMATION
  Report Type: Spontaneous
  Country: DE (occurrence: DE)
  Receive Date: 20200326
  Receipt Date: 20200326
  Transmission Date: 20200409
  Serious: Yes (Other)
  Sender: FDA-Public Use
  Company Number: DE-MYLANLABS-2020M1031422

PATIENT
  Age: 35 Year
  Sex: Female
  Weight: 60 kg

DRUGS (6)
  1. CIPROFLOXACIN. [Suspect]
     Active Substance: CIPROFLOXACIN
     Indication: PRODUCT USED FOR UNKNOWN INDICATION
     Dosage: UNK
     Route: 065
  2. ERENUMAB [Suspect]
     Active Substance: ERENUMAB
     Dosage: 70 MG
     Route: 065
     Dates: start: 20200110, end: 20200110
  3. ZOLPIDEM [Suspect]
     Active Substance: ZOLPIDEM TARTRATE
     Indication: SLEEP DISORDER
     Dosage: 10 MG (ON DEMAND)
     Route: 048
     Dates: start: 20191120
  4. ERENUMAB [Suspect]
     Active Substance: ERENUMAB
     Dosage: 70 MG
     Route: 065
     Dates: start: 20191202, end: 20191202
  5. ESCITALOPRAM [Suspect]
     Active Substance: ESCITALOPRAM OXALATE
     Indication: DEPRESSION
     Dosage: 20 MG, QD
     Route: 048
     Dates: start: 20191120
  6. ERENUMAB [Suspect]
     Active Substance: ERENUMAB
     Indication: PRODUCT USED FOR UNKNOWN INDICATION
     Dosage: 140 MG
     Route: 065
     Dates: start: 20200218

REACTIONS (3)
  - Respiratory tract infection [Recovered/Resolved]
  - Drug ineffective [Unknown]
  - Otitis media [Recovered/Resolved]

NARRATIVE: CASE EVENT DATE: 20200115
